FAERS Safety Report 12352651 (Version 1)
Quarter: 2016Q2

REPORT INFORMATION
  Report Type: Spontaneous
  Country: AU (occurrence: AU)
  Receive Date: 20160510
  Receipt Date: 20160510
  Transmission Date: 20160815
  Serious: Yes (Hospitalization, Other)
  Sender: FDA-Public Use
  Company Number: AU-WATSON-2016-09471

PATIENT
  Age: 68 Year
  Sex: Male

DRUGS (6)
  1. NOREPINEPHRINE [Concomitant]
     Active Substance: NOREPINEPHRINE\NOREPINEPHRINE BITARTRATE
     Indication: ELECTROCARDIOGRAM ST SEGMENT ELEVATION
     Dosage: INFUSION AT A RATE OF 10MG/MIN
     Route: 042
  2. NITROGLYCERIN. [Concomitant]
     Active Substance: NITROGLYCERIN
     Indication: ARTERIOSPASM CORONARY
     Dosage: UNK
     Route: 022
  3. METARAMINOL [Concomitant]
     Active Substance: METARAMINOL
     Indication: ELECTROCARDIOGRAM ST SEGMENT ELEVATION
     Dosage: UNK
     Route: 040
  4. NOREPINEPHRINE [Concomitant]
     Active Substance: NOREPINEPHRINE\NOREPINEPHRINE BITARTRATE
     Indication: HYPOTENSION
  5. METARAMINOL [Concomitant]
     Active Substance: METARAMINOL
     Indication: HYPOTENSION
  6. HEPARIN [Suspect]
     Active Substance: HEPARIN SODIUM
     Indication: ARTERIOSPASM CORONARY
     Dosage: 10000 IU, UNKNOWN
     Route: 065

REACTIONS (1)
  - Post procedural haemorrhage [Recovered/Resolved]
